FAERS Safety Report 10530827 (Version 1)
Quarter: 2014Q4

REPORT INFORMATION
  Report Type: Spontaneous
  Country: ES (occurrence: ES)
  Receive Date: 20141021
  Receipt Date: 20141021
  Transmission Date: 20150528
  Serious: Yes (Other)
  Sender: FDA-Public Use
  Company Number: PHHY2014ES133895

PATIENT
  Age: 72 Year
  Sex: Male

DRUGS (1)
  1. IBUPROFEN. [Suspect]
     Active Substance: IBUPROFEN
     Indication: PAIN
     Dosage: 600 MG, UNK
     Route: 048

REACTIONS (14)
  - Anaphylactic reaction [Recovering/Resolving]
  - Pruritus [Recovering/Resolving]
  - Malaise [Recovering/Resolving]
  - Syncope [Recovering/Resolving]
  - Acute coronary syndrome [Recovering/Resolving]
  - Pallor [Recovering/Resolving]
  - Loss of consciousness [Recovering/Resolving]
  - Angioedema [Recovering/Resolving]
  - Cold sweat [Recovering/Resolving]
  - Rash maculo-papular [Recovering/Resolving]
  - Conjunctival hyperaemia [Recovering/Resolving]
  - Hypotension [Recovering/Resolving]
  - Dizziness [Recovering/Resolving]
  - Oxygen saturation decreased [Recovered/Resolved]
